FAERS Safety Report 8004715-8 (Version None)
Quarter: 2011Q4

REPORT INFORMATION
  Report Type: 
  Country: None (occurrence: None)
  Receive Date: 20111220
  Receipt Date: 20111209
  Transmission Date: 20120403
  Serious: Yes (Hospitalization)
  Sender: FDA-Public Use
  Company Number: WAES 1112USA01248

PATIENT
  Age: 32 Year
  Sex: Female

DRUGS (3)
  1. ALUVIA (IOPINAVIR + RITONAVIR) [Suspect]
     Dates: start: 20111207
  2. ISENTRESS [Suspect]
     Indication: HIV INFECTION
     Dosage: ORAL
     Route: 048
     Dates: start: 20101207
  3. IBUPROFEN [Suspect]
     Dates: start: 20111014

REACTIONS (4)
  - ANAEMIA OF PREGNANCY [None]
  - GASTROENTERITIS [None]
  - DIZZINESS [None]
  - MATERNAL EXPOSURE DURING PREGNANCY [None]
